FAERS Safety Report 12104364 (Version 1)
Quarter: 2016Q1

REPORT INFORMATION
  Report Type: Spontaneous
  Country: US (occurrence: US)
  Receive Date: 20160223
  Receipt Date: 20160223
  Transmission Date: 20160526
  Serious: No
  Sender: FDA-Public Use
  Company Number: US-BAYER-2016-034859

PATIENT
  Age: 31 Year
  Sex: Female

DRUGS (1)
  1. SKYLA [Suspect]
     Active Substance: LEVONORGESTREL
     Indication: CONTRACEPTION
     Dosage: 14 MCG/24HR, CONT
     Route: 015
     Dates: start: 201602

REACTIONS (5)
  - Tenderness [None]
  - Medical device discomfort [None]
  - Complication of device insertion [None]
  - Procedural pain [None]
  - Migraine [None]

NARRATIVE: CASE EVENT DATE: 201602
